FAERS Safety Report 7736844-8 (Version None)
Quarter: 2011Q3

REPORT INFORMATION
  Report Type: 
  Country: None (occurrence: None)
  Receive Date: 20110908
  Receipt Date: 20110908
  Transmission Date: 20111222
  Serious: Yes (Death, Life-Threatening, Hospitalization)
  Sender: FDA-Public Use
  Company Number: None

PATIENT
  Sex: Male
  Weight: 79.378 kg

DRUGS (10)
  1. NAMENDA [Concomitant]
  2. PRAVASTATIN [Concomitant]
     Route: 048
  3. SERTRALINE HYDROCHLORIDE [Concomitant]
     Route: 048
  4. METOPROLOL TARTRATE [Concomitant]
  5. CIPROFLOXACIN [Concomitant]
  6. DILTIAZEM [Concomitant]
  7. SEROQUEL [Suspect]
     Indication: DEPRESSION
     Dosage: 25MG
     Route: 048
     Dates: start: 20110805, end: 20110824
  8. SEROQUEL [Suspect]
     Indication: DEMENTIA
     Dosage: 25MG
     Route: 048
     Dates: start: 20110805, end: 20110824
  9. ASPIRIN [Concomitant]
  10. OMEPRAZOLE [Concomitant]

REACTIONS (2)
  - COMA [None]
  - NEUROLEPTIC MALIGNANT SYNDROME [None]
